FAERS Safety Report 10244291 (Version 1)
Quarter: 2014Q1

REPORT INFORMATION
  Report Type: Spontaneous
  Country: US (occurrence: None)
  Receive Date: 20140306
  Receipt Date: 20140306
  Transmission Date: 20141002
  Serious: Yes (Other)
  Sender: FDA-Public Use
  Company Number: 163-21880-13100925

PATIENT
  Age: 74 Year
  Sex: Male
  Weight: 69.9 kg

DRUGS (3)
  1. REVLIMID (LENALIDOMIDE) (25 MILLIGRAM, CAPSULES) [Suspect]
     Indication: PLASMA CELL MYELOMA
     Route: 048
     Dates: start: 201108
  2. DEXAMETHAAONE (DEXAMETHAAONE) (TABLETS) UNKNOWN- UNKNOWN [Concomitant]
  3. VELCADE (BORTEZOMIB) UNKNOWN- UNKNOWN [Concomitant]

REACTIONS (7)
  - Chest pain [None]
  - Sinusitis [None]
  - Red blood cell count increased [None]
  - Dysuria [None]
  - Diarrhoea [None]
  - Contusion [None]
  - Chills [None]
